FAERS Safety Report 19362754 (Version 1)
Quarter: 2021Q2

REPORT INFORMATION
  Report Type: Spontaneous
  Country: IN (occurrence: IN)
  Receive Date: 20210602
  Receipt Date: 20210602
  Transmission Date: 20210717
  Serious: Yes (Life-Threatening, Hospitalization, Other)
  Sender: FDA-Public Use
  Company Number: IN-AMNEAL PHARMACEUTICALS-2021-AMRX-01882

PATIENT
  Age: 16 Year
  Sex: Female

DRUGS (2)
  1. METHYLPREDNISOLONE SODIUM SUCCINATE. [Suspect]
     Active Substance: METHYLPREDNISOLONE SODIUM SUCCINATE
     Indication: TOXIC EPIDERMAL NECROLYSIS
     Dosage: UNK
     Route: 065
  2. ALBENZA [Suspect]
     Active Substance: ALBENDAZOLE
     Indication: PRODUCT USED FOR UNKNOWN INDICATION
     Dosage: UNK
     Route: 048

REACTIONS (4)
  - Toxic epidermal necrolysis [Recovered/Resolved with Sequelae]
  - Sepsis [Recovered/Resolved]
  - Dermatitis bullous [Recovered/Resolved with Sequelae]
  - Tachycardia [Recovered/Resolved]
